FAERS Safety Report 7693334-9 (Version None)
Quarter: 2011Q3

REPORT INFORMATION
  Report Type: 
  Country: None (occurrence: None)
  Receive Date: 20110819
  Receipt Date: 20110815
  Transmission Date: 20111222
  Serious: No
  Sender: FDA-Public Use
  Company Number: US-PFIZER INC-2011188329

PATIENT
  Sex: Male

DRUGS (5)
  1. SIMVASTATIN [Suspect]
     Dosage: 20 MG, 1X/DAY
     Dates: start: 20110101, end: 20110101
  2. LIPITOR [Suspect]
     Dosage: UNK
  3. SIMVASTATIN [Suspect]
     Dosage: 40 MG, 1X/DAY
     Dates: start: 20110101, end: 20110101
  4. TRICOR [Suspect]
  5. CRESTOR [Suspect]

REACTIONS (1)
  - CONSTIPATION [None]
